FAERS Safety Report 9334432 (Version 1)
Quarter: 2013Q2

REPORT INFORMATION
  Report Type: Spontaneous
  Country: FR (occurrence: FR)
  Receive Date: 20130606
  Receipt Date: 20130606
  Transmission Date: 20140414
  Serious: Yes (Hospitalization, Other)
  Sender: FDA-Public Use
  Company Number: FR-ASTRAZENECA-2013SE38743

PATIENT
  Age: 19880 Day
  Sex: Female

DRUGS (3)
  1. MOPRAL [Suspect]
     Route: 048
  2. TAXOTERE [Suspect]
     Indication: BREAST CANCER
     Route: 065
     Dates: start: 20110408
  3. PLAQUENIL [Suspect]
     Indication: SJOGREN^S SYNDROME
     Route: 048

REACTIONS (5)
  - Invasive ductal breast carcinoma [Unknown]
  - Asthenia [Recovered/Resolved]
  - Febrile neutropenia [Recovered/Resolved]
  - Arthralgia [Recovered/Resolved]
  - Vomiting [Recovered/Resolved]
